FAERS Safety Report 10953888 (Version 1)
Quarter: 2015Q1

REPORT INFORMATION
  Report Type: Spontaneous
  Country: US (occurrence: None)
  Receive Date: 20150226
  Receipt Date: 20150226
  Transmission Date: 20150721
  Serious: Yes (Other)
  Sender: FDA-Public Use
  Company Number: TPA2012A03647

PATIENT
  Sex: Male

DRUGS (1)
  1. ACTOS [Suspect]
     Active Substance: PIOGLITAZONE HYDROCHLORIDE
     Indication: TYPE 2 DIABETES MELLITUS

REACTIONS (10)
  - Dysuria [None]
  - Pollakiuria [None]
  - Bladder cancer [None]
  - Blood urine present [None]
  - Back pain [None]
  - Micturition urgency [None]
  - Functional gastrointestinal disorder [None]
  - Decreased appetite [None]
  - Weight decreased [None]
  - Abdominal pain lower [None]
